FAERS Safety Report 9528206 (Version 7)
Quarter: 2014Q3

REPORT INFORMATION
  Report Type: Report from Study
  Country: BR (occurrence: BR)
  Receive Date: 20130917
  Receipt Date: 20140901
  Transmission Date: 20150326
  Serious: Yes (Other)
  Sender: FDA-Public Use
  Company Number: PHHY2013BR092178

PATIENT
  Age: 68 Year
  Sex: Female

DRUGS (4)
  1. MORPHINE [Concomitant]
     Active Substance: MORPHINE
     Dosage: UNK
  2. SIMVASTATIN. [Suspect]
     Active Substance: SIMVASTATIN
     Dosage: UNK UKN, UNK
  3. ATENOLOL. [Concomitant]
     Active Substance: ATENOLOL
     Indication: CARDIAC DISORDER
     Dosage: 2 TABLETS (25MG) DAILY
     Route: 048
  4. ACLASTA [Suspect]
     Active Substance: ZOLEDRONIC ACID
     Indication: OSTEOPOROSIS
     Dosage: 5MG, 1 APPLICATION
     Route: 042
     Dates: start: 201206

REACTIONS (18)
  - Multiple fractures [Recovering/Resolving]
  - Upper limb fracture [Recovering/Resolving]
  - Radius fracture [Unknown]
  - Accident [Unknown]
  - Impaired healing [Unknown]
  - Malaise [Unknown]
  - Wrist fracture [Recovering/Resolving]
  - Arthralgia [Recovering/Resolving]
  - Joint dislocation [Recovering/Resolving]
  - Blood cholesterol increased [Unknown]
  - Peripheral swelling [Recovering/Resolving]
  - Asthenia [Recovering/Resolving]
  - Pain [Recovering/Resolving]
  - Humerus fracture [Unknown]
  - Pain in extremity [Recovering/Resolving]
  - Fall [Recovering/Resolving]
  - Weight decreased [Recovered/Resolved]
  - Memory impairment [Unknown]

NARRATIVE: CASE EVENT DATE: 201308
